FAERS Safety Report 7702140 (Version 2)
Quarter: 2022Q2

REPORT INFORMATION
  Report Type: Spontaneous
  Country: DE (occurrence: DE)
  Receive Date: 20101209
  Receipt Date: 20220524
  Transmission Date: 20220721
  Serious: Yes (Hospitalization, Other)
  Sender: FDA-Public Use
  Company Number: GXKR2010DE13419

PATIENT
  Age: 70 Year
  Sex: Female

DRUGS (3)
  1. GEMCITABINE HYDROCHLORIDE [Interacting]
     Active Substance: GEMCITABINE HYDROCHLORIDE
     Indication: Transitional cell carcinoma
     Dosage: 1500 MG, BID, CYCLIC
     Route: 065
  2. CARBOPLATIN [Suspect]
     Active Substance: CARBOPLATIN
     Indication: Transitional cell carcinoma
     Dosage: 450 MG, CYCLIC
     Route: 065
  3. CISPLATIN [Interacting]
     Active Substance: CISPLATIN
     Indication: Transitional cell carcinoma
     Dosage: 110 MG, CYCLIC
     Route: 065

REACTIONS (8)
  - Peripheral ischaemia [Recovering/Resolving]
  - Extremity necrosis [Recovering/Resolving]
  - Drug interaction [Not Recovered/Not Resolved]
  - Haemorrhage [Recovering/Resolving]
  - Paraesthesia [Recovering/Resolving]
  - Oedema [Recovering/Resolving]
  - Cyanosis [Recovering/Resolving]
  - Pain [Recovering/Resolving]
